FAERS Safety Report 4580669-1 (Version None)
Quarter: 2005Q1

REPORT INFORMATION
  Report Type: 
  Country: None (occurrence: None)
  Receive Date: 20050214
  Receipt Date: 20040504
  Transmission Date: 20050727
  Serious: No
  Sender: FDA-Public Use
  Company Number: US-GLAXOSMITHKLINE-A0510191A

PATIENT
  Age: 81 Year
  Sex: Male

DRUGS (2)
  1. LAMICTAL [Suspect]
     Dosage: 100MG PER DAY
     Route: 048
  2. DILANTIN [Suspect]
     Dosage: 500MG PER DAY
     Route: 065

REACTIONS (1)
  - TREMOR [None]
